FAERS Safety Report 12095235 (Version 1)
Quarter: 2016Q1

REPORT INFORMATION
  Report Type: Spontaneous
  Country: NL (occurrence: NL)
  Receive Date: 20160219
  Receipt Date: 20160219
  Transmission Date: 20160526
  Serious: Yes (Other)
  Sender: FDA-Public Use
  Company Number: NL-BRISTOL-MYERS SQUIBB COMPANY-18831537

PATIENT
  Sex: Female

DRUGS (2)
  1. XYLOCAINE [Suspect]
     Active Substance: LIDOCAINE HYDROCHLORIDE
     Indication: INFECTION
     Dosage: 20MG/ML INJECTION
     Route: 065
  2. KENALOG-40 [Suspect]
     Active Substance: TRIAMCINOLONE ACETONIDE
     Indication: INFECTION
     Dosage: 1DF:40MG/ML INJECTION
     Route: 065
     Dates: start: 20130311

REACTIONS (7)
  - Hyperthyroidism [Not Recovered/Not Resolved]
  - Skin discolouration [Recovered/Resolved]
  - Skin atrophy [Not Recovered/Not Resolved]
  - Weight decreased [Not Recovered/Not Resolved]
  - Flushing [Not Recovered/Not Resolved]
  - Product use issue [Unknown]
  - Hepatic function abnormal [Not Recovered/Not Resolved]
